FAERS Safety Report 8860182 (Version 1)
Quarter: 2012Q4

REPORT INFORMATION
  Report Type: 
  Country: CN (occurrence: CN)
  Receive Date: 20121025
  Receipt Date: 20121025
  Transmission Date: 20130627
  Serious: Yes (Life-Threatening)
  Sender: FDA-Public Use
  Company Number: CN-JNJFOC-20121012784

PATIENT
  Age: 58 Year
  Sex: Female

DRUGS (3)
  1. SPORANOX [Suspect]
     Indication: PULMONARY MYCOSIS
     Dosage: 25 ml: 0.25 g
     Route: 065
     Dates: start: 20120922, end: 20120923
  2. UNSPECIFIED INGREDIENT [Suspect]
     Indication: PRODUCT USED FOR UNKNOWN INDICATION
     Route: 065
  3. ANTIHYPERTENSIVE [Concomitant]
     Indication: HYPERTENSION
     Route: 048

REACTIONS (1)
  - Shock [Recovered/Resolved]
